FAERS Safety Report 11298505 (Version 2)
Quarter: 2015Q4

REPORT INFORMATION
  Report Type: Spontaneous
  Country: US (occurrence: US)
  Receive Date: 20150722
  Receipt Date: 20151110
  Transmission Date: 20160304
  Serious: No
  Sender: FDA-Public Use
  Company Number: US-ELI_LILLY_AND_COMPANY-US201111006845

PATIENT
  Age: 59 Year
  Sex: Female

DRUGS (3)
  1. FORTEO [Suspect]
     Active Substance: TERIPARATIDE
     Indication: OSTEOPOROSIS
     Dosage: 20 UG, QD
     Dates: start: 200709, end: 200909
  2. FORTEO [Suspect]
     Active Substance: TERIPARATIDE
     Dosage: 20 UG, QD
     Dates: start: 20111116
  3. EVISTA [Suspect]
     Active Substance: RALOXIFENE HYDROCHLORIDE
     Indication: OSTEOPOROSIS
     Dosage: 60 MG, QD
     Dates: start: 200709, end: 200710

REACTIONS (6)
  - Nerve injury [Recovered/Resolved]
  - Medication error [Unknown]
  - Memory impairment [Unknown]
  - Vascular injury [Recovered/Resolved]
  - Pain in extremity [Recovered/Resolved]
  - Dental implantation [Unknown]

NARRATIVE: CASE EVENT DATE: 200709
